FAERS Safety Report 11712995 (Version 2)
Quarter: 2016Q1

REPORT INFORMATION
  Report Type: Spontaneous
  Country: US (occurrence: US)
  Receive Date: 20151108
  Receipt Date: 20160113
  Transmission Date: 20160525
  Serious: No
  Sender: FDA-Public Use
  Company Number: US-009507513-1511USA003984

PATIENT
  Sex: Female
  Weight: 87.75 kg

DRUGS (1)
  1. NEXPLANON [Suspect]
     Active Substance: ETONOGESTREL
     Indication: CONTRACEPTION
     Dosage: 68 MG/ 1 ROD EVERY 3 YEARS
     Route: 059
     Dates: start: 20150210

REACTIONS (2)
  - No adverse event [Unknown]
  - Device breakage [Unknown]

NARRATIVE: CASE EVENT DATE: 2015
